FAERS Safety Report 16126397 (Version 4)
Quarter: 2019Q3

REPORT INFORMATION
  Report Type: Spontaneous
  Country: PT (occurrence: PT)
  Receive Date: 20190328
  Receipt Date: 20190703
  Transmission Date: 20191004
  Serious: Yes (Hospitalization, Other)
  Sender: FDA-Public Use
  Company Number: PT-AUROBINDO-AUR-APL-2019-015749

PATIENT

DRUGS (4)
  1. CLINDAMYCIN. [Suspect]
     Active Substance: CLINDAMYCIN
     Indication: PRODUCT USED FOR UNKNOWN INDICATION
     Dosage: UNK
     Route: 065
  2. PREDNISOLONE. [Suspect]
     Active Substance: PREDNISOLONE
     Indication: PRODUCT USED FOR UNKNOWN INDICATION
     Dosage: 10 MILLIGRAM
     Route: 065
  3. IBUPROFEN 600MG [Suspect]
     Active Substance: IBUPROFEN
     Indication: DRESSLER^S SYNDROME
     Dosage: 1200 MILLIGRAM, DAILY,600 MG, BID
     Route: 065
  4. AMOXICILLIN+CLAVULANIC ACID [Suspect]
     Active Substance: AMOXICILLIN\CLAVULANIC ACID
     Indication: PRODUCT USED FOR UNKNOWN INDICATION
     Dosage: UNK
     Route: 065

REACTIONS (8)
  - Acute kidney injury [Recovering/Resolving]
  - Blood creatinine increased [Recovered/Resolved]
  - Drug ineffective [Recovered/Resolved]
  - Proteinuria [Unknown]
  - Product use in unapproved indication [Unknown]
  - Tuberculous pleurisy [Recovered/Resolved]
  - Hypersensitivity [Unknown]
  - Haematuria [Unknown]
